FAERS Safety Report 17640129 (Version 1)
Quarter: 2020Q2

REPORT INFORMATION
  Report Type: Spontaneous
  Country: US (occurrence: US)
  Receive Date: 20200408
  Receipt Date: 20200408
  Transmission Date: 20200713
  Serious: No
  Sender: FDA-Public Use
  Company Number: US-EMD SERONO-9155220

PATIENT
  Age: 39 Year
  Sex: Male

DRUGS (1)
  1. REBIF [Suspect]
     Active Substance: INTERFERON BETA-1A
     Indication: MULTIPLE SCLEROSIS
     Dosage: REBIF PREFILLED SYRINGE.
     Route: 058
     Dates: start: 200903

REACTIONS (4)
  - Abdominal pain [Unknown]
  - Insurance issue [Unknown]
  - Treatment noncompliance [Unknown]
  - Influenza like illness [Unknown]

NARRATIVE: CASE EVENT DATE: 202003
